FAERS Safety Report 11114180 (Version 1)
Quarter: 2015Q2

REPORT INFORMATION
  Report Type: Spontaneous
  Country: US (occurrence: US)
  Receive Date: 20150514
  Receipt Date: 20150514
  Transmission Date: 20150821
  Serious: Yes (Death)
  Sender: FDA-Public Use
  Company Number: US-ENDO PHARMACEUTICALS INC.-201411082

PATIENT
  Age: 61 Year
  Sex: Male
  Weight: 84.9 kg

DRUGS (1)
  1. TESTIM [Suspect]
     Active Substance: TESTOSTERONE
     Indication: BLOOD TESTOSTERONE DECREASED
     Route: 062
     Dates: start: 200507, end: 20090308

REACTIONS (3)
  - Myocardial infarction [None]
  - Coronary artery disease [None]
  - Cardiac tamponade [None]

NARRATIVE: CASE EVENT DATE: 20090308
